FAERS Safety Report 15270222 (Version 1)
Quarter: 2018Q3

REPORT INFORMATION
  Report Type: Spontaneous
  Country: CN (occurrence: CN)
  Receive Date: 20180813
  Receipt Date: 20180813
  Transmission Date: 20181010
  Serious: Yes (Other)
  Sender: FDA-Public Use
  Company Number: CN-BAYER-2018-145999

PATIENT
  Sex: Male

DRUGS (1)
  1. BAYASPIRIN 100 MG [Suspect]
     Active Substance: ASPIRIN
     Indication: THROMBOSIS PROPHYLAXIS
     Dosage: UNK
     Route: 048

REACTIONS (6)
  - Cardiac fibrillation [None]
  - Heart rate increased [None]
  - Discomfort [None]
  - Cardiac failure [None]
  - Chest discomfort [None]
  - Palpitations [None]

NARRATIVE: CASE EVENT DATE: 20180802
